FAERS Safety Report 20165096 (Version 2)
Quarter: 2021Q4

REPORT INFORMATION
  Report Type: Spontaneous
  Country: US (occurrence: US)
  Receive Date: 20211209
  Receipt Date: 20211230
  Transmission Date: 20220303
  Serious: No
  Sender: FDA-Public Use
  Company Number: US-PFIZER INC-202101553387

PATIENT
  Age: 15 Year
  Sex: Male
  Weight: 52.16 kg

DRUGS (1)
  1. GENOTROPIN [Suspect]
     Active Substance: SOMATROPIN
     Indication: Short stature
     Dosage: 2.8 MG (SIX NIGHTS A WEEK IN HIS ARM)
     Dates: start: 202103

REACTIONS (8)
  - Intentional device misuse [Recovered/Resolved]
  - Incorrect route of product administration [Unknown]
  - Expired device used [Unknown]
  - Device use error [Unknown]
  - Device physical property issue [Unknown]
  - Drug dose omission by device [Not Recovered/Not Resolved]
  - Device mechanical issue [Recovered/Resolved]
  - Device information output issue [Recovered/Resolved]

NARRATIVE: CASE EVENT DATE: 20211108
